FAERS Safety Report 8773795 (Version 1)
Quarter: 2012Q4

REPORT INFORMATION
  Report Type: 
  Country: SE (occurrence: SE)
  Receive Date: 20120907
  Receipt Date: 20120907
  Transmission Date: 20130627
  Serious: Yes (Death, Other)
  Sender: FDA-Public Use
  Company Number: SE-GENZYME-CAMP-1002350

PATIENT

DRUGS (5)
  1. CAMPATH [Suspect]
     Indication: CHRONIC LYMPHOCYTIC LEUKAEMIA
     Dosage: 30 mg, 3x/w upto 18 weeks
     Route: 058
     Dates: start: 20001018, end: 20010305
  2. VALACICLOVIR [Concomitant]
     Indication: INFECTION PROPHYLAXIS
     Dosage: UNK, during therapy and for 8 weeks after completion of therapy
     Route: 065
  3. COTRIMOXAZOLE [Concomitant]
     Indication: INFECTION PROPHYLAXIS
     Dosage: UNK, during therapy and for 8 weeks after completion of therapy
     Route: 065
  4. VALSARTAN [Concomitant]
     Indication: PRODUCT USED FOR UNKNOWN INDICATION
     Dosage: 160 mg/day, UNK
     Route: 065
     Dates: start: 200211
  5. FLUCONAZOLE [Concomitant]
     Indication: INFECTION PROPHYLAXIS
     Dosage: UNK, during therapy and for 8 weeks after completion of therapy
     Route: 065

REACTIONS (3)
  - Death [Fatal]
  - Chronic lymphocytic leukaemia [Unknown]
  - Epstein-Barr virus infection [Recovered/Resolved]
